FAERS Safety Report 10403130 (Version 1)
Quarter: 2014Q3

REPORT INFORMATION
  Report Type: Spontaneous
  Country: SG (occurrence: SG)
  Receive Date: 20140822
  Receipt Date: 20140822
  Transmission Date: 20150326
  Serious: Yes (Other)
  Sender: FDA-Public Use
  Company Number: SG-MYLAN-2014M1002064

PATIENT

DRUGS (13)
  1. AUGMENTIN [Concomitant]
     Active Substance: AMOXICILLIN\CLAVULANATE POTASSIUM
     Indication: PNEUMONIA
     Dosage: 625MG
     Route: 048
  2. CLONAZEPAM. [Concomitant]
     Active Substance: CLONAZEPAM
     Route: 065
  3. NEUROFORTE [Concomitant]
     Route: 065
  4. TEARS NATURALE II                  /00134201/ [Concomitant]
     Route: 050
  5. CIPROFLOXACIN. [Suspect]
     Active Substance: CIPROFLOXACIN
     Indication: OFF LABEL USE
     Dosage: 0.3%, 1 DROP IN EACH EYE, FOUR TIMES A DAY
     Route: 047
  6. PHENYTOIN. [Interacting]
     Active Substance: PHENYTOIN
     Dosage: 330MG AT NIGHT
     Route: 048
  7. LACTULOSE. [Concomitant]
     Active Substance: LACTULOSE
     Route: 065
  8. PHENYTOIN. [Interacting]
     Active Substance: PHENYTOIN
     Dosage: 300MG AT NIGHT
     Route: 048
  9. CLARITHROMYCIN. [Concomitant]
     Active Substance: CLARITHROMYCIN
     Indication: PNEUMONIA
     Dosage: FOR ONE WEEK
     Route: 048
  10. RISPERIDONE. [Concomitant]
     Active Substance: RISPERIDONE
     Route: 065
  11. TEARS NATURALE II                  /00134201/ [Concomitant]
     Route: 050
  12. CALCIUM CARBONATE. [Concomitant]
     Active Substance: CALCIUM CARBONATE
     Route: 065
  13. FOLIC ACID. [Concomitant]
     Active Substance: FOLIC ACID
     Route: 065

REACTIONS (3)
  - Drug interaction [Recovered/Resolved]
  - Convulsion [Recovered/Resolved]
  - Drug level decreased [None]
